FAERS Safety Report 5222351-3 (Version None)
Quarter: 2007Q1

REPORT INFORMATION
  Report Type: 
  Country: None (occurrence: None)
  Receive Date: 20070124
  Receipt Date: 20070116
  Transmission Date: 20070707
  Serious: Yes (Other)
  Sender: FDA-Public Use
  Company Number: 2007S1000022

PATIENT
  Age: 20 Year
  Sex: Female

DRUGS (1)
  1. LUXIQ (0.12 PCT) [Suspect]
     Indication: SKIN DISORDER
     Dosage: 0.12 PCT; TOP
     Route: 061
     Dates: start: 20061117, end: 20061101

REACTIONS (3)
  - CONDITION AGGRAVATED [None]
  - DELUSION [None]
  - POSTPARTUM DEPRESSION [None]
